FAERS Safety Report 13285732 (Version 1)
Quarter: 2017Q1

REPORT INFORMATION
  Report Type: Spontaneous
  Country: US (occurrence: US)
  Receive Date: 20170301
  Receipt Date: 20170301
  Transmission Date: 20170428
  Serious: No
  Sender: FDA-Public Use
  Company Number: None

PATIENT
  Age: 44 Year
  Sex: Female

DRUGS (1)
  1. TALTZ [Suspect]
     Active Substance: IXEKIZUMAB
     Indication: MYOCARDITIS INFECTIOUS
     Route: 058
     Dates: start: 20160826, end: 20170228

REACTIONS (4)
  - Hormone level abnormal [None]
  - Hyperthyroidism [None]
  - Myalgia [None]
  - Neuralgia [None]

NARRATIVE: CASE EVENT DATE: 20170228
